FAERS Safety Report 18725881 (Version 3)
Quarter: 2021Q1

REPORT INFORMATION
  Report Type: Spontaneous
  Country: US (occurrence: US)
  Receive Date: 20210111
  Receipt Date: 20210310
  Transmission Date: 20210419
  Serious: No
  Sender: FDA-Public Use
  Company Number: US-GLAXOSMITHKLINE-US2021AMR001248

PATIENT
  Age: 49 Year
  Sex: Female

DRUGS (2)
  1. ZEJULA [Suspect]
     Active Substance: NIRAPARIB
     Indication: FALLOPIAN TUBE CANCER
     Dosage: 100 MG, QD
     Route: 065
     Dates: start: 20190824
  2. ZEJULA [Suspect]
     Active Substance: NIRAPARIB
     Dosage: 100 MG, QD

REACTIONS (5)
  - Abdominal pain [Recovered/Resolved]
  - Product dose omission issue [Unknown]
  - Palmar-plantar erythrodysaesthesia syndrome [Unknown]
  - Somnolence [Unknown]
  - Product monitoring error [Unknown]

NARRATIVE: CASE EVENT DATE: 202101
